FAERS Safety Report 5903783-4 (Version None)
Quarter: 2008Q3

REPORT INFORMATION
  Report Type: 
  Country: None (occurrence: None)
  Receive Date: 20080930
  Receipt Date: 20080922
  Transmission Date: 20090109
  Serious: Yes (Other)
  Sender: FDA-Public Use
  Company Number: ZA-GILEAD-2007-0011823

PATIENT
  Sex: Female
  Weight: 88 kg

DRUGS (8)
  1. TRUVADA [Suspect]
     Indication: HIV INFECTION
     Route: 048
     Dates: start: 20060413, end: 20070315
  2. KALETRA [Suspect]
     Indication: HIV INFECTION
     Route: 048
     Dates: start: 20060413
  3. COMBIVIR [Suspect]
     Indication: HIV INFECTION
     Route: 048
     Dates: start: 20070315, end: 20070323
  4. VITAMIN B [Concomitant]
     Dates: start: 20060413
  5. ASCORBIC ACID [Concomitant]
     Dates: start: 20060413
  6. VOLTAREN [Concomitant]
     Dates: start: 20070310
  7. C0-TRIMOXAZOLE [Concomitant]
     Dates: start: 20060330, end: 20061221
  8. DIPHENHYDRAMINE HCL [Concomitant]
     Dates: start: 20070118, end: 20070123

REACTIONS (1)
  - ABORTION SPONTANEOUS [None]
